FAERS Safety Report 8358618-X (Version None)
Quarter: 2012Q2

REPORT INFORMATION
  Report Type: 
  Country: None (occurrence: None)
  Receive Date: 20120514
  Receipt Date: 20120509
  Transmission Date: 20120825
  Serious: Yes (Hospitalization, Other)
  Sender: FDA-Public Use
  Company Number: BR-ROCHE-768315

PATIENT
  Sex: Female
  Weight: 64 kg

DRUGS (1)
  1. ACTEMRA [Suspect]
     Indication: MUSCULOSKELETAL PAIN
     Dosage: INTERRUPTED
     Route: 042
     Dates: start: 20100325, end: 20120313

REACTIONS (5)
  - WEIGHT DECREASED [None]
  - DEPRESSION [None]
  - URINARY TRACT INFECTION [None]
  - CARDIOMEGALY [None]
  - DISEASE PROGRESSION [None]
